FAERS Safety Report 6717717-6 (Version None)
Quarter: 2010Q2

REPORT INFORMATION
  Report Type: 
  Country: None (occurrence: None)
  Receive Date: 20100507
  Receipt Date: 20100507
  Transmission Date: 20101027
  Serious: Yes (Hospitalization)
  Sender: FDA-Public Use
  Company Number: None

PATIENT
  Age: 46 Year
  Sex: Male
  Weight: 92.1 kg

DRUGS (1)
  1. LISINOPRIL [Suspect]
     Indication: HYPERTENSION
     Dosage: 20 MG EVERY DAY PO
     Route: 048
     Dates: start: 20061128, end: 20100328

REACTIONS (5)
  - ANGIOEDEMA [None]
  - ANXIETY [None]
  - RESPIRATORY DEPRESSION [None]
  - SPEECH DISORDER [None]
  - WHEEZING [None]
